FAERS Safety Report 25366270 (Version 1)
Quarter: 2025Q2

REPORT INFORMATION
  Report Type: Report from Study
  Country: CA (occurrence: CA)
  Receive Date: 20250528
  Receipt Date: 20250528
  Transmission Date: 20250717
  Serious: Yes (Other)
  Sender: CELLTRION
  Company Number: CA-CELLTRION INC.-2025CA015754

PATIENT

DRUGS (20)
  1. RITUXIMAB [Suspect]
     Active Substance: RITUXIMAB
     Indication: Rheumatoid arthritis
     Route: 042
  2. ACRIVASTINE [Concomitant]
     Active Substance: ACRIVASTINE
     Indication: Premedication
     Route: 048
  3. BACLOFEN [Concomitant]
     Active Substance: BACLOFEN
  4. BUDESONIDE\FORMOTEROL FUMARATE [Concomitant]
     Active Substance: BUDESONIDE\FORMOTEROL FUMARATE
  5. CALCIUM [Concomitant]
     Active Substance: CALCIUM
  6. DAYVIGO [Concomitant]
     Active Substance: LEMBOREXANT
  7. LORAZEPAM [Concomitant]
     Active Substance: LORAZEPAM
  8. LYRICA [Concomitant]
     Active Substance: PREGABALIN
  9. MAGNESIUM [Concomitant]
     Active Substance: MAGNESIUM
  10. METHYLPREDNISOLONE SODIUM PHOSPHATE [Concomitant]
     Active Substance: METHYLPREDNISOLONE SODIUM PHOSPHATE
     Indication: Premedication
     Route: 048
  11. OMEGA 3 [COLECALCIFEROL;DOCOSAHEXAENOIC ACID;EICOSAPENTAENOIC ACID;RET [Concomitant]
  12. PREDNISONE [Concomitant]
     Active Substance: PREDNISONE
     Indication: Premedication
     Route: 048
  13. RABEPRAZOLE [Concomitant]
     Active Substance: RABEPRAZOLE
     Indication: Aphonia
  14. RABEPRAZOLE [Concomitant]
     Active Substance: RABEPRAZOLE
  15. ROMOSOZUMAB [Concomitant]
     Active Substance: ROMOSOZUMAB
  16. ALBUTEROL [Concomitant]
     Active Substance: ALBUTEROL
  17. TYLENOL [Concomitant]
     Active Substance: ACETAMINOPHEN
     Indication: Premedication
     Route: 048
  18. CHOLECALCIFEROL [Concomitant]
     Active Substance: CHOLECALCIFEROL
  19. ZINC [Concomitant]
     Active Substance: ZINC
  20. ZOPICLONE [Concomitant]
     Active Substance: ZOPICLONE

REACTIONS (1)
  - Malignant melanoma [Unknown]
